FAERS Safety Report 6169602-9 (Version None)
Quarter: 2009Q2

REPORT INFORMATION
  Report Type: 
  Country: None (occurrence: None)
  Receive Date: 20090428
  Receipt Date: 20090423
  Transmission Date: 20091009
  Serious: Yes (Hospitalization)
  Sender: FDA-Public Use
  Company Number: US-BRISTOL-MYERS SQUIBB COMPANY-14569198

PATIENT
  Age: 75 Year
  Sex: Male
  Weight: 63 kg

DRUGS (14)
  1. CYCLOPHOSPHAMIDE [Suspect]
     Indication: DIFFUSE LARGE B-CELL LYMPHOMA
     Dosage: ON DAY 1 EVERY 21 DAYS FIRST DOSE: 23-JAN-09
     Route: 042
     Dates: start: 20090313, end: 20090313
  2. DOXORUBICIN HCL [Suspect]
     Indication: DIFFUSE LARGE B-CELL LYMPHOMA
     Dosage: ON DAY 1 EVERY 21 DAYS FIRST DOSE: 23-JAN-09
     Route: 042
     Dates: start: 20090313, end: 20090313
  3. VINCRISTINE [Suspect]
     Indication: DIFFUSE LARGE B-CELL LYMPHOMA
     Dosage: ON DAY 1 EVERY 21 DAYS FIRST DOSE: 23-JAN-09
     Route: 042
     Dates: start: 20090313, end: 20090313
  4. PREDNISONE TAB [Suspect]
     Indication: DIFFUSE LARGE B-CELL LYMPHOMA
     Dosage: ON DAYS 1 THROUGH 5 EVERY 21 DAYS FIRST DOSE: 23-JAN-09
     Route: 048
     Dates: start: 20090313, end: 20090313
  5. ENZASTAURIN [Suspect]
     Indication: DIFFUSE LARGE B-CELL LYMPHOMA
     Dosage: LOADING DOSE(1ST):1125MG ON 24JAN09 25JAN09-13MAR09(48D):500MG;PO ON HOLD SINCE 19MAR09(54 DAYS)
     Route: 048
     Dates: start: 20090319, end: 20090319
  6. RITUXIMAB [Suspect]
     Indication: DIFFUSE LARGE B-CELL LYMPHOMA
     Dosage: ON DAY 1 EVERY 21 DAYS FIRST DOSE: 23-JAN-09
     Route: 042
     Dates: start: 20090319, end: 20090319
  7. FENTANYL [Concomitant]
     Dates: start: 20090320
  8. HYDROMORPHONE HCL [Concomitant]
     Dates: start: 20090119
  9. IRON [Concomitant]
     Dates: start: 20090123
  10. MARINOL [Concomitant]
     Dates: start: 20090113
  11. MEGESTROL ACETATE [Concomitant]
     Dates: start: 20090306
  12. OMEPRAZOLE [Concomitant]
     Dates: start: 20090127
  13. ZOFRAN [Concomitant]
     Dates: start: 20090127
  14. DRONABINOL [Concomitant]

REACTIONS (4)
  - ANAEMIA [None]
  - DEHYDRATION [None]
  - FATIGUE [None]
  - HYPOTENSION [None]
